FAERS Safety Report 10641023 (Version 1)
Quarter: 2014Q4

REPORT INFORMATION
  Report Type: Spontaneous
  Country: US (occurrence: None)
  Receive Date: 20141208
  Receipt Date: 20141208
  Transmission Date: 20150529
  Serious: Yes (Hospitalization)
  Sender: FDA-Public Use
  Company Number: None

PATIENT
  Age: 57 Year
  Sex: Female
  Weight: 92.9 kg

DRUGS (21)
  1. TYLENOL [Concomitant]
     Active Substance: ACETAMINOPHEN
  2. ZOFRAN [Concomitant]
     Active Substance: ONDANSETRON HYDROCHLORIDE
  3. COLACE [Concomitant]
     Active Substance: DOCUSATE SODIUM
  4. DULCOLAX [Concomitant]
     Active Substance: BISACODYL OR DOCUSATE SODIUM
  5. ROCEPHIN [Concomitant]
     Active Substance: CEFTRIAXONE SODIUM
  6. MILK OF MAGNESIA [Concomitant]
     Active Substance: MAGNESIUM HYDROXIDE
  7. RIBAVIRIN. [Suspect]
     Active Substance: RIBAVIRIN
     Indication: HEPATITIS C
     Dosage: 200, 1X DAILY, ORAL
     Route: 048
     Dates: start: 20140629
  8. PANTOPRAZOLE [Concomitant]
     Active Substance: PANTOPRAZOLE SODIUM
  9. LASIX [Concomitant]
     Active Substance: FUROSEMIDE
  10. LACTULOSE. [Concomitant]
     Active Substance: LACTULOSE
  11. CARVEDILOL. [Concomitant]
     Active Substance: CARVEDILOL
  12. SOFOSBUVIR [Suspect]
     Active Substance: SOFOSBUVIR
     Indication: HEPATITIS C
     Dosage: 400, 1X DAILY, ORAL
     Route: 048
     Dates: start: 20140629
  13. LEVAQUIN [Concomitant]
     Active Substance: LEVOFLOXACIN
  14. LABETALOL [Concomitant]
     Active Substance: LABETALOL\LABETALOL HYDROCHLORIDE
  15. ROBITUSSIN DM [Concomitant]
     Active Substance: DEXTROMETHORPHAN HYDROBROMIDE\GUAIFENESIN
  16. PREMARIN [Concomitant]
     Active Substance: ESTROGENS, CONJUGATED
  17. RAPAMUNE [Concomitant]
     Active Substance: SIROLIMUS
  18. DIOVAN [Concomitant]
     Active Substance: VALSARTAN
  19. MAALOX ANTACID [Concomitant]
     Active Substance: ALUMINUM HYDROXIDE\DIMETHICONE\MAGNESIUM HYDROXIDE
  20. MYFORTIC [Concomitant]
     Active Substance: MYCOPHENOLATE SODIUM
  21. RIFAXIMIN [Concomitant]
     Active Substance: RIFAXIMIN

REACTIONS (8)
  - Hepatic encephalopathy [None]
  - Chronic kidney disease [None]
  - Atelectasis [None]
  - Pleural effusion [None]
  - Depressed level of consciousness [None]
  - Lethargy [None]
  - Confusional state [None]
  - Cardiac failure congestive [None]

NARRATIVE: CASE EVENT DATE: 20141030
